FAERS Safety Report 11430521 (Version 1)
Quarter: 2015Q3

REPORT INFORMATION
  Report Type: Spontaneous
  Country: US (occurrence: US)
  Receive Date: 20150828
  Receipt Date: 20150828
  Transmission Date: 20151125
  Serious: No
  Sender: FDA-Public Use
  Company Number: US-ROCHE-1073832

PATIENT
  Sex: Female

DRUGS (2)
  1. RIBASPHERE RIBAPAK [Suspect]
     Active Substance: RIBAVIRIN
     Indication: CHRONIC HEPATITIS C
     Dosage: IN DIVIDED DOSES
     Route: 048
     Dates: start: 20120424, end: 20130401
  2. PEGASYS [Suspect]
     Active Substance: PEGINTERFERON ALFA-2A
     Indication: CHRONIC HEPATITIS C
     Route: 058
     Dates: start: 20120424, end: 20130401

REACTIONS (17)
  - Familial tremor [Unknown]
  - Hypoaesthesia [Recovered/Resolved]
  - Anxiety [Unknown]
  - Rash pruritic [Unknown]
  - Tremor [Not Recovered/Not Resolved]
  - Dry mouth [Unknown]
  - Memory impairment [Unknown]
  - Decreased appetite [Unknown]
  - Negative thoughts [Unknown]
  - Alopecia [Unknown]
  - Disturbance in attention [Unknown]
  - Confusional state [Unknown]
  - Irritability [Not Recovered/Not Resolved]
  - Anger [Unknown]
  - Pruritus [Unknown]
  - Depression [Not Recovered/Not Resolved]
  - Fatigue [Unknown]
